FAERS Safety Report 6347923-4 (Version None)
Quarter: 2009Q3

REPORT INFORMATION
  Report Type: 
  Country: None (occurrence: None)
  Receive Date: 20090910
  Receipt Date: 20090902
  Transmission Date: 20100115
  Serious: Yes (Hospitalization, Other)
  Sender: FDA-Public Use
  Company Number: PHHY2008DE21548

PATIENT
  Sex: Male
  Weight: 74 kg

DRUGS (7)
  1. LEPONEX [Suspect]
     Indication: SCHIZOPHRENIA
     Dosage: 100-100-400 MG/DAY
     Route: 048
  2. LEPONEX [Suspect]
     Dosage: 600 MG/DAILY
     Route: 048
     Dates: end: 20080916
  3. SOLIAN [Concomitant]
     Indication: SCHIZOPHRENIA
     Dosage: 200 MG/DAY
     Route: 048
  4. ATOSIL [Concomitant]
     Indication: SLEEP DISORDER
     Dosage: 25 MG/DAY
     Route: 048
     Dates: end: 20080914
  5. ORFIRIL [Concomitant]
     Indication: SCHIZOPHRENIA
     Dosage: 1200 MG/DAY
     Route: 048
     Dates: end: 20080915
  6. CIPRAMIL [Concomitant]
     Indication: DEPRESSION
     Dosage: 40 MG/DAY
     Route: 048
     Dates: end: 20080914
  7. DOXEPIN HCL [Concomitant]
     Indication: DEPRESSION
     Dosage: 75 MG/DAY
     Route: 048
     Dates: end: 20080915

REACTIONS (7)
  - ANTIPSYCHOTIC DRUG LEVEL INCREASED [None]
  - ASTERIXIS [None]
  - CLONUS [None]
  - DISORIENTATION [None]
  - DISTURBANCE IN ATTENTION [None]
  - GAMMA-GLUTAMYLTRANSFERASE INCREASED [None]
  - HEPATIC ENCEPHALOPATHY [None]
